FAERS Safety Report 25962387 (Version 1)
Quarter: 2025Q4

REPORT INFORMATION
  Report Type: Spontaneous
  Country: US (occurrence: None)
  Receive Date: 20251024
  Receipt Date: 20251024
  Transmission Date: 20260118
  Serious: Yes (Hospitalization)
  Sender: FDA-CTU
  Company Number: None

PATIENT
  Age: 64 Year
  Sex: Female
  Weight: 55.8 kg

DRUGS (3)
  1. SCOPOLAMINE TRANSDERMAL SYSTEM [Suspect]
     Active Substance: SCOPOLAMINE
     Indication: Product used for unknown indication
     Dates: start: 20251018, end: 20251020
  2. Levothyroxine Clobetasol cream [Concomitant]
  3. Aleve Exedrine migraine [Concomitant]

REACTIONS (8)
  - Dizziness [None]
  - Balance disorder [None]
  - Aphasia [None]
  - Amnesia [None]
  - Confusional state [None]
  - Delirium [None]
  - Paranoia [None]
  - Agitation [None]

NARRATIVE: CASE EVENT DATE: 20251021
